FAERS Safety Report 16070491 (Version 1)
Quarter: 2019Q1

REPORT INFORMATION
  Report Type: Spontaneous
  Country: FR (occurrence: FR)
  Receive Date: 20190314
  Receipt Date: 20190314
  Transmission Date: 20190418
  Serious: Yes (Other)
  Sender: FDA-Public Use
  Company Number: FR-AUROBINDO-AUR-APL-2019-012950

PATIENT

DRUGS (1)
  1. TRAMADOL TABLET [Suspect]
     Active Substance: TRAMADOL
     Indication: BACK PAIN
     Dosage: 45 DOSAGE FORM, ONCE A DAY, 45 DF, 1/DAY
     Route: 048

REACTIONS (4)
  - Overdose [Unknown]
  - Epilepsy [Unknown]
  - Drug dependence [Unknown]
  - Prescription drug used without a prescription [Unknown]
